FAERS Safety Report 20140826 (Version 1)
Quarter: 2021Q4

REPORT INFORMATION
  Report Type: Spontaneous
  Country: AR (occurrence: AR)
  Receive Date: 20211202
  Receipt Date: 20211202
  Transmission Date: 20220303
  Serious: Yes (Other)
  Sender: FDA-Public Use
  Company Number: AR-NOVARTISPH-PHHY2018AR053809

PATIENT
  Age: 72 Year
  Sex: Male

DRUGS (2)
  1. TIMOLOL MALEATE\TRAVOPROST [Suspect]
     Active Substance: TIMOLOL MALEATE\TRAVOPROST
     Indication: Glaucoma
     Dosage: 1 DRP, QD (2.5 ML)
     Route: 047
     Dates: start: 201712
  2. TIMOLOL MALEATE\TRAVOPROST [Suspect]
     Active Substance: TIMOLOL MALEATE\TRAVOPROST
     Indication: Intraocular pressure test abnormal
     Dosage: UNK (1 OF 5 ML, QD APPROXIMETLY 2 YEAR AGO)
     Route: 065
     Dates: end: 202103

REACTIONS (5)
  - Blindness [Not Recovered/Not Resolved]
  - Nervousness [Not Recovered/Not Resolved]
  - Fear [Unknown]
  - Intraocular pressure increased [Not Recovered/Not Resolved]
  - Vision blurred [Unknown]

NARRATIVE: CASE EVENT DATE: 20210301
